FAERS Safety Report 4596967-1 (Version None)
Quarter: 2005Q1

REPORT INFORMATION
  Report Type: 
  Country: None (occurrence: None)
  Receive Date: 20050302
  Receipt Date: 20050221
  Transmission Date: 20050727
  Serious: Yes (Hospitalization, Other)
  Sender: FDA-Public Use
  Company Number: US-ABBOTT-05P-163-0291637-00

PATIENT
  Sex: Female
  Weight: 72.64 kg

DRUGS (3)
  1. SYNTHROID [Suspect]
     Indication: THYROIDECTOMY
     Route: 048
     Dates: start: 19760101
  2. WARFARIN SODIUM [Concomitant]
     Indication: THROMBOPHLEBITIS
     Route: 048
  3. WARFARIN SODIUM [Concomitant]
     Route: 048

REACTIONS (6)
  - ARTHRALGIA [None]
  - ARTHROPATHY [None]
  - DIFFICULTY IN WALKING [None]
  - PAIN IN EXTREMITY [None]
  - PERIPHERAL EMBOLISM [None]
  - PERIPHERAL VASCULAR DISORDER [None]
